FAERS Safety Report 20327827 (Version 1)
Quarter: 2022Q1

REPORT INFORMATION
  Report Type: Spontaneous
  Country: US (occurrence: None)
  Receive Date: 20220111
  Receipt Date: 20220111
  Transmission Date: 20220423
  Serious: Yes (Other)
  Sender: FDA-Public Use
  Company Number: None

PATIENT
  Age: 63 Year
  Sex: Male
  Weight: 90 kg

DRUGS (1)
  1. NEBIVOLOL [Suspect]
     Active Substance: NEBIVOLOL
     Indication: Hypertension
     Dosage: 20 MG  DAILY ORAL?
     Route: 048
     Dates: start: 20210601, end: 20210610

REACTIONS (4)
  - Product substitution issue [None]
  - Hypertensive crisis [None]
  - Treatment failure [None]
  - Insurance issue [None]

NARRATIVE: CASE EVENT DATE: 20210610
